FAERS Safety Report 5867301-1 (Version None)
Quarter: 2008Q3

REPORT INFORMATION
  Report Type: 
  Country: None (occurrence: None)
  Receive Date: 20080829
  Receipt Date: 20080829
  Transmission Date: 20090109
  Serious: Yes (Hospitalization)
  Sender: FDA-Public Use
  Company Number: None

PATIENT
  Sex: Male
  Weight: 52.4 kg

DRUGS (1)
  1. TEMOLOLOMIDE [Suspect]
     Dosage: 3720 MG

REACTIONS (3)
  - NEUTROPENIA [None]
  - PLATELET COUNT DECREASED [None]
  - STAPHYLOCOCCAL INFECTION [None]
